FAERS Safety Report 14894334 (Version 2)
Quarter: 2018Q2

REPORT INFORMATION
  Report Type: Spontaneous
  Country: DE (occurrence: DE)
  Receive Date: 20180515
  Receipt Date: 20180523
  Transmission Date: 20180711
  Serious: Yes (Other)
  Sender: FDA-Public Use
  Company Number: DE-AMGEN-DEUSP2018063065

PATIENT
  Sex: Male
  Weight: 80 kg

DRUGS (1)
  1. REPATHA [Suspect]
     Active Substance: EVOLOCUMAB
     Indication: PRODUCT USED FOR UNKNOWN INDICATION
     Dosage: 140 MG, UNK
     Route: 065

REACTIONS (5)
  - Cough [Unknown]
  - Pyrexia [Unknown]
  - Rhinitis [Unknown]
  - Nasopharyngitis [Unknown]
  - Micturition urgency [Not Recovered/Not Resolved]
